FAERS Safety Report 6919513-3 (Version None)
Quarter: 2010Q3

REPORT INFORMATION
  Report Type: 
  Country: None (occurrence: None)
  Receive Date: 20100810
  Receipt Date: 20100810
  Transmission Date: 20110219
  Serious: Yes (Hospitalization)
  Sender: FDA-Public Use
  Company Number: None

PATIENT
  Sex: Female
  Weight: 113.3 kg

DRUGS (7)
  1. CYCLOPHOSPHAMIDE [Suspect]
     Dosage: 3420 MG
     Dates: end: 20100724
  2. DOXORUBICIN HYDROCHLORIDE [Suspect]
     Dosage: 86 MG
     Dates: end: 20100724
  3. LEUCOVORIN CALCIUM [Suspect]
     Dosage: 360 MG
     Dates: end: 20100725
  4. METHOTREXATE [Suspect]
     Dosage: 323 MG
     Dates: end: 20100723
  5. PREDNISONE [Suspect]
     Dosage: 510 MG
     Dates: end: 20100728
  6. RITUXIMAB (MOAB C2B8 ANTI CD20, CHIMERIC) [Suspect]
     Dosage: 640 MG
     Dates: end: 20100722
  7. VINCRISTINE SULFATE [Suspect]
     Dosage: 2 MG
     Dates: end: 20100724

REACTIONS (12)
  - CHILLS [None]
  - CLOSTRIDIAL INFECTION [None]
  - FATIGUE [None]
  - FEBRILE NEUTROPENIA [None]
  - HAEMOGLOBIN DECREASED [None]
  - HEADACHE [None]
  - MALAISE [None]
  - MUCOSAL INFLAMMATION [None]
  - PLATELET COUNT DECREASED [None]
  - PYREXIA [None]
  - STOMATITIS [None]
  - WHITE BLOOD CELL COUNT DECREASED [None]
